FAERS Safety Report 18671972 (Version 1)
Quarter: 2020Q4

REPORT INFORMATION
  Report Type: Report from Study
  Country: US (occurrence: US)
  Receive Date: 20201228
  Receipt Date: 20201228
  Transmission Date: 20210114
  Serious: Yes (Hospitalization)
  Sender: FDA-Public Use
  Company Number: US-ULTRAGENYX PHARMACEUTICAL INC.-US-UGNX-20-00036

PATIENT
  Age: 22 Year
  Sex: Male
  Weight: 81.82 kg

DRUGS (7)
  1. TRIHEPTANOIN. [Suspect]
     Active Substance: TRIHEPTANOIN
     Route: 048
     Dates: end: 20200213
  2. PSEUDOEPHEDRINE SULFATE + LORATADINE [Concomitant]
     Indication: HYPERSENSITIVITY
     Route: 048
  3. LIFES DHA OMEGA [Concomitant]
     Indication: RETINAL DYSTROPHY
     Route: 048
     Dates: start: 2008
  4. TRIHEPTANOIN. [Suspect]
     Active Substance: TRIHEPTANOIN
     Route: 048
     Dates: start: 20200221
  5. TRIHEPTANOIN. [Suspect]
     Active Substance: TRIHEPTANOIN
     Indication: LONG-CHAIN ACYL-COENZYME A DEHYDROGENASE DEFICIENCY
     Route: 048
     Dates: start: 20180417
  6. GABAPENTIN. [Concomitant]
     Active Substance: GABAPENTIN
     Indication: NEUROPATHY PERIPHERAL
     Route: 048
     Dates: start: 201801
  7. EXCEDRIN MIGRAINE [Concomitant]
     Active Substance: ACETAMINOPHEN\ASPIRIN\CAFFEINE
     Indication: MIGRAINE
     Route: 048

REACTIONS (3)
  - Gastrooesophageal reflux disease [Recovered/Resolved]
  - Rhabdomyolysis [Recovered/Resolved]
  - Chronic gastritis [Recovered/Resolved]

NARRATIVE: CASE EVENT DATE: 20200217
